FAERS Safety Report 9295336 (Version 1)
Quarter: 2013Q2

REPORT INFORMATION
  Report Type: Report from Study
  Country: US (occurrence: US)
  Receive Date: 20130517
  Receipt Date: 20130517
  Transmission Date: 20140414
  Serious: Yes (Hospitalization, Other)
  Sender: FDA-Public Use
  Company Number: US-ASTELLAS-2013US005126

PATIENT
  Age: 64 Year
  Sex: Female
  Weight: 65 kg

DRUGS (11)
  1. ERLOTINIB TABLET [Suspect]
     Indication: LUNG NEOPLASM MALIGNANT
     Dosage: UNK
     Route: 065
     Dates: start: 20110419
  2. VIVELLE-DOT [Concomitant]
     Indication: PRODUCT USED FOR UNKNOWN INDICATION
     Dosage: 2 DF, 2 IN 1 WEEK
     Route: 048
  3. AMBIEN CR [Concomitant]
     Indication: PRODUCT USED FOR UNKNOWN INDICATION
     Dosage: 12.5 MG, QHS
     Route: 065
  4. MULTIVITAMIN                       /00097801/ [Concomitant]
     Indication: PRODUCT USED FOR UNKNOWN INDICATION
     Dosage: 1 DF, UID/QD
     Route: 048
  5. ZITHROMAX Z-PAK [Concomitant]
     Indication: PRODUCT USED FOR UNKNOWN INDICATION
     Dosage: 250 MG, UNKNOWN/D
     Route: 065
  6. DICLOFENAC EPOLAMINE [Concomitant]
     Indication: PRODUCT USED FOR UNKNOWN INDICATION
     Dosage: 1 DF, Q12 HOURS
     Route: 065
  7. DEXAMETHASONE [Concomitant]
     Indication: PRODUCT USED FOR UNKNOWN INDICATION
     Dosage: 4 MG, UID/QD
     Route: 048
  8. PROMETHAZINE [Concomitant]
     Indication: NAUSEA
     Dosage: 25 MG, Q6 HOURS
     Route: 048
  9. ALLEGRA-D                          /01367401/ [Concomitant]
     Indication: PRODUCT USED FOR UNKNOWN INDICATION
     Dosage: PRN Q 24HR
     Route: 048
  10. BENZONATATE [Concomitant]
     Indication: COUGH
     Dosage: 200 MG, Q8 HOURS
     Route: 065
  11. CLINDAMYCIN [Concomitant]
     Indication: PRODUCT USED FOR UNKNOWN INDICATION
     Dosage: UNK
     Route: 061

REACTIONS (13)
  - Pulmonary embolism [Recovered/Resolved]
  - Pleural effusion [Recovered/Resolved]
  - Pneumothorax [Unknown]
  - Pleural fibrosis [Unknown]
  - Pleural effusion [Recovered/Resolved]
  - Acute respiratory failure [Unknown]
  - Leukocytosis [Unknown]
  - Metastases to liver [Unknown]
  - Osteoarthritis [Unknown]
  - Depression [Unknown]
  - Anxiety [Unknown]
  - Gastrooesophageal reflux disease [Unknown]
  - Sinus tachycardia [Unknown]
